FAERS Safety Report 7400989-2 (Version None)
Quarter: 2011Q2

REPORT INFORMATION
  Report Type: 
  Country: None (occurrence: None)
  Receive Date: 20110407
  Receipt Date: 20110331
  Transmission Date: 20111010
  Serious: Yes (Other)
  Sender: FDA-Public Use
  Company Number: CH-GENZYME-FLUD-1001004

PATIENT

DRUGS (4)
  1. FLUDARA [Suspect]
     Indication: CHRONIC GRANULOMATOUS DISEASE
  2. FLUDARA [Suspect]
     Indication: STEM CELL TRANSPLANT
     Dosage: 180 MG/M2 QD ON DAYS -8 TO -3
     Route: 065
  3. BUSULFAN [Suspect]
     Indication: CHRONIC GRANULOMATOUS DISEASE
  4. BUSULFAN [Suspect]
     Indication: STEM CELL TRANSPLANT
     Dosage: 6.4 - 12 MG/KG QD ON DAYS -4 TO -2
     Route: 065

REACTIONS (1)
  - APLASIA PURE RED CELL [None]
